FAERS Safety Report 22621739 (Version 1)
Quarter: 2023Q2

REPORT INFORMATION
  Report Type: Spontaneous
  Country: FR (occurrence: FR)
  Receive Date: 20230620
  Receipt Date: 20230620
  Transmission Date: 20230721
  Serious: Yes (Other)
  Sender: FDA-Public Use
  Company Number: None

PATIENT
  Age: 86 Year
  Sex: Female
  Weight: 72 kg

DRUGS (2)
  1. ABEMACICLIB [Suspect]
     Active Substance: ABEMACICLIB
     Indication: Breast cancer metastatic
     Dosage: 50 MG, BID
     Route: 048
     Dates: start: 202105
  2. ABEMACICLIB [Suspect]
     Active Substance: ABEMACICLIB
     Dosage: 50 MG, DAILY
     Route: 048
     Dates: start: 202109

REACTIONS (2)
  - Hepatic cytolysis [Recovered/Resolved]
  - Cholestasis [Not Recovered/Not Resolved]

NARRATIVE: CASE EVENT DATE: 20210611
